FAERS Safety Report 4987206-8 (Version None)
Quarter: 2006Q2

REPORT INFORMATION
  Report Type: 
  Country: None (occurrence: None)
  Receive Date: 20060501
  Receipt Date: 20060419
  Transmission Date: 20061013
  Serious: Yes (Disabling)
  Sender: FDA-Public Use
  Company Number: JP-MERCK-0604USA03339

PATIENT
  Age: 55 Year
  Sex: Female

DRUGS (8)
  1. PEPCID [Suspect]
     Indication: GASTRITIS
     Route: 048
     Dates: start: 20060309, end: 20060320
  2. FOSAMAX [Suspect]
     Indication: OSTEOPOROSIS
     Route: 048
     Dates: start: 20060309, end: 20060320
  3. MUCOSTA [Suspect]
     Indication: GASTRITIS
     Route: 048
     Dates: start: 20060228, end: 20060320
  4. SOLU-CORTEF [Suspect]
     Indication: OPTIC NEURITIS
     Route: 042
     Dates: start: 20060210, end: 20060212
  5. SOLU-CORTEF [Suspect]
     Route: 042
     Dates: start: 20060301, end: 20060303
  6. SOLU-CORTEF [Suspect]
     Route: 042
  7. FAMOTIDINE [Concomitant]
     Route: 048
     Dates: end: 20060308
  8. BONALON [Concomitant]
     Route: 048
     Dates: end: 20060308

REACTIONS (4)
  - ALANINE AMINOTRANSFERASE INCREASED [None]
  - ASPARTATE AMINOTRANSFERASE INCREASED [None]
  - BLOOD ALKALINE PHOSPHATASE INCREASED [None]
  - HEPATIC FUNCTION ABNORMAL [None]
